FAERS Safety Report 21128700 (Version 2)
Quarter: 2022Q3

REPORT INFORMATION
  Report Type: Spontaneous
  Country: GB (occurrence: None)
  Receive Date: 20220725
  Receipt Date: 20220922
  Transmission Date: 20221027
  Serious: Yes (Hospitalization)
  Sender: FDA-Public Use
  Company Number: GB-ROCHE-3057330

PATIENT
  Sex: Female

DRUGS (1)
  1. PHESGO [Suspect]
     Active Substance: HYALURONIDASE-ZZXF\PERTUZUMAB\TRASTUZUMAB
     Indication: Product used for unknown indication
     Route: 058
     Dates: start: 2019

REACTIONS (11)
  - Blindness unilateral [Unknown]
  - Nausea [Unknown]
  - Infection [Unknown]
  - Lethargy [Unknown]
  - Eye infection [Unknown]
  - Peripheral swelling [Unknown]
  - Joint swelling [Unknown]
  - C-reactive protein increased [Unknown]
  - Confusional state [Unknown]
  - Hypotension [Unknown]
  - Malaise [Unknown]
